FAERS Safety Report 17124276 (Version 2)
Quarter: 2019Q4

REPORT INFORMATION
  Report Type: Spontaneous
  Country: US (occurrence: US)
  Receive Date: 20191206
  Receipt Date: 20191223
  Transmission Date: 20200122
  Serious: No
  Sender: FDA-Public Use
  Company Number: US-JNJFOC-20191208677

PATIENT
  Sex: Male
  Weight: 53.12 kg

DRUGS (1)
  1. STELARA [Suspect]
     Active Substance: USTEKINUMAB
     Indication: CROHN^S DISEASE
     Route: 058
     Dates: start: 201904

REACTIONS (2)
  - Product dose omission [Unknown]
  - Needle issue [Unknown]

NARRATIVE: CASE EVENT DATE: 2019
